FAERS Safety Report 9230769 (Version 1)
Quarter: 2013Q2

REPORT INFORMATION
  Report Type: Spontaneous
  Country: GB (occurrence: None)
  Receive Date: 20130411
  Receipt Date: 20130411
  Transmission Date: 20140414
  Serious: Yes (Other)
  Sender: FDA-Public Use
  Company Number: AUR-APL-2013-02887

PATIENT
  Age: 74 Year
  Sex: Female

DRUGS (7)
  1. CEFALEXIN [Suspect]
     Indication: URINARY TRACT INFECTION
     Route: 048
     Dates: start: 20130315, end: 20130316
  2. ATENOLOL (ATENOLOL) [Concomitant]
  3. BENDROFLUMETHIAZIDE (BENDROFLUMETHIAZIDE) [Concomitant]
  4. LACIDIPINE (LACIDIPINE) [Concomitant]
  5. SYSTANE (RHINARIS) [Concomitant]
  6. TEMAZEPAM (TEMAZEPAM) [Concomitant]
  7. ORAMORPH (MORPHINE SULFATE) [Concomitant]

REACTIONS (3)
  - Arthralgia [None]
  - Rash [None]
  - Erythema [None]
